FAERS Safety Report 4677197-1 (Version None)
Quarter: 2005Q2

REPORT INFORMATION
  Report Type: 
  Country: None (occurrence: None)
  Receive Date: 20050531
  Receipt Date: 20050519
  Transmission Date: 20051028
  Serious: Yes (Hospitalization)
  Sender: FDA-Public Use
  Company Number: US-JNJFOC-20050306224

PATIENT
  Sex: Female

DRUGS (18)
  1. INFLIXIMAB [Suspect]
     Indication: RHEUMATOID ARTHRITIS
     Route: 042
  2. PROZAC [Concomitant]
  3. VICODIN [Concomitant]
  4. VICODIN [Concomitant]
     Dosage: 5/500MG 6 TABS DAILY
  5. ULTRACET [Concomitant]
  6. VALTREX [Concomitant]
  7. PRINIVIL [Concomitant]
  8. TOPROL-XL [Concomitant]
  9. PREDNISONE [Concomitant]
  10. METHOTREXATE [Concomitant]
  11. FOLIC ACID [Concomitant]
  12. PREVACID [Concomitant]
  13. PREMARIN [Concomitant]
  14. VALIUM [Concomitant]
  15. PLAVIX [Concomitant]
  16. TENORMIN [Concomitant]
  17. ASPIRIN [Concomitant]
  18. LIPITOR [Concomitant]

REACTIONS (2)
  - CATHETER SITE HAEMORRHAGE [None]
  - CORONARY ARTERY ATHEROSCLEROSIS [None]
